FAERS Safety Report 4295723-1 (Version None)
Quarter: 2004Q1

REPORT INFORMATION
  Report Type: 
  Country: None (occurrence: None)
  Receive Date: 20040216
  Receipt Date: 20031017
  Transmission Date: 20041129
  Serious: No
  Sender: FDA-Public Use
  Company Number: US-GLAXOSMITHKLINE-A0430704A

PATIENT
  Age: 26 Year
  Sex: Female

DRUGS (3)
  1. LAMICTAL [Suspect]
     Indication: BIPOLAR DISORDER
     Dosage: 100MG PER DAY
     Route: 048
     Dates: start: 20010615
  2. SEROQUEL [Suspect]
     Indication: ANXIETY
     Dosage: 100MG PER DAY
     Route: 048
     Dates: start: 20010615
  3. EFFEXOR [Suspect]
     Indication: DEPRESSION
     Dosage: 150MG PER DAY
     Route: 048
     Dates: start: 20010615, end: 20030505

REACTIONS (1)
  - DRUG EXPOSURE DURING PREGNANCY [None]
